FAERS Safety Report 22266901 (Version 2)
Quarter: 2023Q2

REPORT INFORMATION
  Report Type: Spontaneous
  Country: US (occurrence: None)
  Receive Date: 20230428
  Receipt Date: 20230522
  Transmission Date: 20230722
  Serious: Yes (Life-Threatening, Hospitalization)
  Sender: FDA-Public Use
  Company Number: 2023A098877

PATIENT
  Age: 16 Year
  Sex: Female
  Weight: 34 kg

DRUGS (6)
  1. OMEPRAZOLE [Interacting]
     Active Substance: OMEPRAZOLE
     Route: 048
  2. CLOBAZAM [Interacting]
     Active Substance: CLOBAZAM
  3. CLOBAZAM [Interacting]
     Active Substance: CLOBAZAM
  4. OXCARBAZEPINE [Interacting]
     Active Substance: OXCARBAZEPINE
     Dosage: TITRATED TO 450 MG EVERY 12 HOURS (26 MG/KG/DAY)
     Route: 048
  5. OXCARBAZEPINE [Interacting]
     Active Substance: OXCARBAZEPINE
     Dosage: 300 MG EVERY 12 HOURS (AROUND 18 MG/KG/DAY)
     Route: 048
  6. LEVETIRACETAM [Concomitant]
     Active Substance: LEVETIRACETAM
     Dosage: 1000 MG IN THE MORNING AND 1500 MG EVERY EVENING (73 MG/KG/DAY)

REACTIONS (4)
  - Drug interaction [Unknown]
  - Hypothermia [Recovered/Resolved]
  - Respiratory failure [Recovered/Resolved]
  - Circulatory collapse [Recovered/Resolved]
